FAERS Safety Report 20153095 (Version 1)
Quarter: 2021Q4

REPORT INFORMATION
  Report Type: Spontaneous
  Country: US (occurrence: US)
  Receive Date: 20211206
  Receipt Date: 20211206
  Transmission Date: 20220303
  Serious: Yes (Other)
  Sender: FDA-Public Use
  Company Number: US-CIPHER-2021-US-000252

PATIENT
  Age: 61 Year
  Sex: Male
  Weight: 74.3 kg

DRUGS (15)
  1. FENOFIBRATE [Suspect]
     Active Substance: FENOFIBRATE
     Indication: Product used for unknown indication
     Dosage: DOSE UNKNOWN
  2. OMEGA 3 [Concomitant]
     Active Substance: CAPSAICIN
  3. ALLEGRA-D [Concomitant]
     Active Substance: FEXOFENADINE HYDROCHLORIDE\PSEUDOEPHEDRINE HYDROCHLORIDE
  4. IRON [Concomitant]
     Active Substance: IRON
  5. NIACIN [Concomitant]
     Active Substance: NIACIN
  6. MAGNESIUM [Concomitant]
     Active Substance: MAGNESIUM
  7. BEZAFIBRATE [Suspect]
     Active Substance: BEZAFIBRATE
  8. JARDIANCE [Concomitant]
     Active Substance: EMPAGLIFLOZIN
  9. JANUMET [Concomitant]
     Active Substance: METFORMIN HYDROCHLORIDE\SITAGLIPTIN PHOSPHATE
  10. ACTOS [Concomitant]
     Active Substance: PIOGLITAZONE HYDROCHLORIDE
  11. LOSARTAN [Concomitant]
     Active Substance: LOSARTAN
  12. NEXIUM [Concomitant]
     Active Substance: ESOMEPRAZOLE MAGNESIUM
  13. ASPIRIN [Concomitant]
     Active Substance: ASPIRIN
  14. VITAMINS [Suspect]
     Active Substance: VITAMINS
  15. VITAMIN D3 [Suspect]
     Active Substance: CHOLECALCIFEROL

REACTIONS (1)
  - Blood creatinine increased [Unknown]

NARRATIVE: CASE EVENT DATE: 20210823
